FAERS Safety Report 8235966-5 (Version None)
Quarter: 2012Q1

REPORT INFORMATION
  Report Type: 
  Country: None (occurrence: None)
  Receive Date: 20120326
  Receipt Date: 20120315
  Transmission Date: 20120608
  Serious: Yes (Other)
  Sender: FDA-Public Use
  Company Number: CA-AMGEN-CANSP2012014876

PATIENT
  Age: 70 Year
  Sex: Female
  Weight: 54.422 kg

DRUGS (5)
  1. CRESTOR [Concomitant]
     Dosage: UNK
  2. CALCIUM CARBONATE [Concomitant]
     Dosage: UNK
  3. VITAMIN D [Concomitant]
     Dosage: UNK
  4. PROLIA [Suspect]
     Indication: OSTEOPOROSIS
     Dosage: 60 MG, Q6MO
     Route: 058
     Dates: start: 20120221, end: 20120221
  5. ADALAT [Concomitant]
     Dosage: UNK

REACTIONS (10)
  - INCONTINENCE [None]
  - BACK PAIN [None]
  - ERYTHEMA [None]
  - ACTIVITIES OF DAILY LIVING IMPAIRED [None]
  - IMMUNE SYSTEM DISORDER [None]
  - DRY SKIN [None]
  - ABDOMINAL DISTENSION [None]
  - ARTHRALGIA [None]
  - URINARY TRACT INFECTION [None]
  - BLADDER DISORDER [None]
